FAERS Safety Report 11088566 (Version 1)
Quarter: 2015Q2

REPORT INFORMATION
  Report Type: Spontaneous
  Country: US (occurrence: US)
  Receive Date: 20150504
  Receipt Date: 20150504
  Transmission Date: 20150821
  Serious: Yes (Death, Hospitalization, Other)
  Sender: FDA-Public Use
  Company Number: US-JAZZ-JPI-P-014152

PATIENT
  Age: 61 Year
  Sex: Male
  Weight: 178 kg

DRUGS (44)
  1. XYREM [Suspect]
     Active Substance: SODIUM OXYBATE
     Dosage: 4 G, QD
     Route: 048
  2. VALSARTAN. [Suspect]
     Active Substance: VALSARTAN
     Indication: HYPERTENSION
     Dates: end: 20111024
  3. LEVOTHYROXINE SODIUM. [Concomitant]
     Active Substance: LEVOTHYROXINE SODIUM
     Indication: HYPOTHYROIDISM
     Dosage: 25 ?G, UNK
     Dates: start: 20140625
  4. GLUCOSAMINE CHONDROITIN [Concomitant]
     Active Substance: CHONDROITIN SULFATE (BOVINE)\GLUCOSAMINE HYDROCHLORIDE
  5. DAPSONE. [Concomitant]
     Active Substance: DAPSONE
  6. ROSUVASTATIN CALCIUM (CRESTOR) [Concomitant]
     Indication: HYPERLIPIDAEMIA
  7. REVLIMID [Concomitant]
     Active Substance: LENALIDOMIDE
     Indication: PLASMA CELL MYELOMA
     Dosage: UNK
     Dates: start: 20141202
  8. XYREM [Suspect]
     Active Substance: SODIUM OXYBATE
     Indication: CATAPLEXY
     Dosage: 4.5 G, BID
     Route: 048
     Dates: start: 20050509, end: 20111023
  9. CALCIUM [Suspect]
     Active Substance: CALCIUM
     Indication: PRODUCT USED FOR UNKNOWN INDICATION
     Dates: end: 20111024
  10. FLUID HYDRATION [Suspect]
     Active Substance: UNSPECIFIED INGREDIENT
     Indication: HYPERCALCAEMIA
     Dates: start: 201110
  11. TESTOSTERONE (ANDROGEL) [Concomitant]
     Indication: ANDROGEN DEFICIENCY
  12. VITAMIN E [Concomitant]
     Active Substance: .ALPHA.-TOCOPHEROL
  13. ACICLOVIR [Concomitant]
     Active Substance: ACYCLOVIR
     Indication: PROPHYLAXIS
     Dosage: UNK
     Dates: start: 20140625
  14. NEUPOGEN [Concomitant]
     Active Substance: FILGRASTIM
     Dosage: UNK UNK, SINGLE
     Route: 051
     Dates: start: 20140625
  15. DEXAMETHASONE. [Concomitant]
     Active Substance: DEXAMETHASONE
     Indication: PRODUCT USED FOR UNKNOWN INDICATION
     Dosage: UNK
     Dates: start: 20140625
  16. SIMVASTATIN. [Concomitant]
     Active Substance: SIMVASTATIN
  17. GABAPENTIN. [Concomitant]
     Active Substance: GABAPENTIN
     Indication: NEUROPATHY PERIPHERAL
     Dosage: UNK MG, UNK
  18. GABAPENTIN. [Concomitant]
     Active Substance: GABAPENTIN
     Dosage: 100 MG, UNK
  19. CIPROFLOXACIN. [Concomitant]
     Active Substance: CIPROFLOXACIN
     Indication: PROPHYLAXIS
  20. FUROSEMIDE. [Suspect]
     Active Substance: FUROSEMIDE
     Indication: ACUTE KIDNEY INJURY
  21. AMLODIPINE [Concomitant]
     Active Substance: AMLODIPINE BESYLATE
  22. LEVOTHYROXINE SODIUM. [Concomitant]
     Active Substance: LEVOTHYROXINE SODIUM
     Dosage: 100 ?G, UNK
  23. VITAMIN D3 [Concomitant]
     Active Substance: CHOLECALCIFEROL
  24. BENADRYL ALLERGY [Concomitant]
     Active Substance: DIPHENHYDRAMINE HYDROCHLORIDE
     Indication: PRODUCT USED FOR UNKNOWN INDICATION
  25. FUROSEMIDE. [Suspect]
     Active Substance: FUROSEMIDE
     Indication: HYPERCALCAEMIA
     Route: 042
     Dates: start: 201110
  26. FLUOXETINE HYDROCHLORIDE. [Concomitant]
     Active Substance: FLUOXETINE HYDROCHLORIDE
     Indication: CATAPLEXY
     Dosage: 10 MG, UNK
     Dates: start: 20140625
  27. MULTIVITAMINS [Concomitant]
     Active Substance: VITAMINS
     Indication: PRODUCT USED FOR UNKNOWN INDICATION
     Dosage: UNK
     Dates: start: 20140625
  28. XYREM [Suspect]
     Active Substance: SODIUM OXYBATE
     Indication: NARCOLEPSY
     Route: 048
     Dates: start: 20050418, end: 20050508
  29. NUVIGIL [Concomitant]
     Active Substance: ARMODAFINIL
     Indication: NARCOLEPSY
     Dosage: UNK
     Dates: start: 20140625
  30. ASPIRIN. [Concomitant]
     Active Substance: ASPIRIN
  31. TAMSULOSIN HYDROCHLORIDE (FLOMAX) [Concomitant]
  32. CYCLOBENZAPRINE HYDROCHLORIDE (FLEXERIL) [Concomitant]
     Indication: BACK PAIN
     Dosage: UNK
     Dates: start: 20140625
  33. KEFLEX [Concomitant]
     Active Substance: CEPHALEXIN
     Indication: PRODUCT USED FOR UNKNOWN INDICATION
     Dosage: UNK
     Dates: start: 20120702
  34. ALLOPURINOL. [Concomitant]
     Active Substance: ALLOPURINOL
     Indication: PRODUCT USED FOR UNKNOWN INDICATION
     Dosage: UNK
     Dates: start: 20140625
  35. XYREM [Suspect]
     Active Substance: SODIUM OXYBATE
     Dosage: 4.5 G, BID
     Route: 048
     Dates: start: 20120122
  36. DICLOFENAC [Suspect]
     Active Substance: DICLOFENAC
     Indication: OSTEOARTHRITIS
     Dates: end: 20111024
  37. FLUID HYDRATION [Suspect]
     Active Substance: UNSPECIFIED INGREDIENT
     Indication: ACUTE KIDNEY INJURY
  38. BYSTOLIC [Concomitant]
     Active Substance: NEBIVOLOL HYDROCHLORIDE
     Indication: HYPERTENSION
     Dosage: 10 MG, QD
     Dates: start: 20140625
  39. NUCYNTA [Concomitant]
     Active Substance: TAPENTADOL HYDROCHLORIDE
     Dosage: UNK
     Dates: start: 20130301
  40. OMEPRAZOLE. [Concomitant]
     Active Substance: OMEPRAZOLE
     Indication: PRODUCT USED FOR UNKNOWN INDICATION
     Dosage: UNK
     Dates: start: 20140625
  41. XYREM [Suspect]
     Active Substance: SODIUM OXYBATE
     Dosage: 4.5 G, BID
     Route: 048
     Dates: start: 20111107, end: 20111108
  42. DICLOFENAC [Suspect]
     Active Substance: DICLOFENAC
     Indication: PAIN
  43. NUCYNTA [Concomitant]
     Active Substance: TAPENTADOL HYDROCHLORIDE
     Indication: BACK PAIN
     Dosage: 100 MG, UNK
  44. HYDROMORPHONE [Concomitant]
     Active Substance: HYDROMORPHONE
     Indication: PRODUCT USED FOR UNKNOWN INDICATION
     Dosage: UNK
     Dates: start: 20130301

REACTIONS (16)
  - Plasma cell myeloma [Fatal]
  - Somnolence [Recovered/Resolved]
  - Hypercalcaemia [Recovered/Resolved]
  - Condition aggravated [Unknown]
  - Renal impairment [Unknown]
  - Acute kidney injury [Recovered/Resolved]
  - Abasia [Recovered/Resolved]
  - Cardiac failure congestive [Recovered/Resolved]
  - Micturition urgency [Unknown]
  - Sudden onset of sleep [Recovered/Resolved]
  - Fall [Recovered/Resolved]
  - Confabulation [Recovered/Resolved]
  - Hypotension [Recovered/Resolved]
  - Weight decreased [Unknown]
  - Confusional state [Recovered/Resolved]
  - Pollakiuria [Unknown]

NARRATIVE: CASE EVENT DATE: 201101
